FAERS Safety Report 10265984 (Version 1)
Quarter: 2014Q2

REPORT INFORMATION
  Report Type: Spontaneous
  Country: CA (occurrence: CA)
  Receive Date: 20140627
  Receipt Date: 20140627
  Transmission Date: 20141212
  Serious: Yes (Life-Threatening)
  Sender: FDA-Public Use
  Company Number: CA-CUBIST PHARMACEUTICAL, INC.-2014CBST000918

PATIENT
  Sex: 0

DRUGS (6)
  1. CUBICIN [Suspect]
     Indication: STAPHYLOCOCCAL INFECTION
     Dosage: 8.26 MG/KG, Q24H
     Route: 042
     Dates: start: 20140326, end: 20140403
  2. CUBICIN [Suspect]
     Indication: ARTHRITIS INFECTIVE
     Dosage: 1000 MG, Q24H
     Route: 042
     Dates: start: 20140326, end: 20140403
  3. CUBICIN [Suspect]
     Indication: OFF LABEL USE
     Dosage: 8.26 MG/KG, Q24H
     Route: 042
     Dates: start: 20140419
  4. CUBICIN [Suspect]
     Dosage: 5.9 MG/KG, Q24H
     Route: 042
  5. CUBICIN [Suspect]
     Dosage: 725 MG, Q24H
     Route: 042
  6. LINEZOLID [Concomitant]
     Indication: PRODUCT USED FOR UNKNOWN INDICATION
     Dosage: UNK UNK, UNK
     Route: 065

REACTIONS (3)
  - Respiratory distress [Unknown]
  - Blood creatine phosphokinase increased [Recovering/Resolving]
  - Blood creatinine increased [Recovering/Resolving]
